FAERS Safety Report 17464663 (Version 1)
Quarter: 2020Q1

REPORT INFORMATION
  Report Type: Spontaneous
  Country: RO (occurrence: RO)
  Receive Date: 20200226
  Receipt Date: 20200226
  Transmission Date: 20200409
  Serious: Yes (Other)
  Sender: FDA-Public Use
  Company Number: RO-PFIZER INC-2020084560

PATIENT
  Age: 42 Year
  Sex: Female

DRUGS (3)
  1. ZOLEDRONIC ACID [Suspect]
     Active Substance: ZOLEDRONIC ACID
  2. ZOLADEX [Suspect]
     Active Substance: GOSERELIN ACETATE
  3. TAMOXIFEN [Suspect]
     Active Substance: TAMOXIFEN
     Indication: HORMONE THERAPY

REACTIONS (2)
  - Hypercalcaemia [Recovered/Resolved]
  - Disease recurrence [Recovered/Resolved]
